FAERS Safety Report 9183315 (Version 1)
Quarter: 2013Q1

REPORT INFORMATION
  Report Type: Spontaneous
  Country: US (occurrence: US)
  Receive Date: 20130322
  Receipt Date: 20130322
  Transmission Date: 20140127
  Serious: Yes (Hospitalization)
  Sender: FDA-Public Use
  Company Number: US-PFIZER INC-2013095401

PATIENT
  Age: 66 Year
  Sex: Male
  Weight: 76.19 kg

DRUGS (3)
  1. LYRICA [Suspect]
     Indication: NERVE INJURY
     Dosage: 75 MG, 3X/DAY
     Route: 048
     Dates: start: 201105
  2. LYRICA [Suspect]
     Indication: BACK PAIN
  3. ASPIRIN [Concomitant]
     Dosage: 81 MG, 1X/DAY

REACTIONS (2)
  - Meningitis fungal [Unknown]
  - Drug effect incomplete [Unknown]
